FAERS Safety Report 5988754-4 (Version None)
Quarter: 2008Q4

REPORT INFORMATION
  Report Type: 
  Country: None (occurrence: None)
  Receive Date: 20081210
  Receipt Date: 20081204
  Transmission Date: 20090506
  Serious: Yes (Death, Other)
  Sender: FDA-Public Use
  Company Number: PHBS2008DE06585

PATIENT
  Age: 48 Year
  Sex: Male

DRUGS (2)
  1. CYCLOSPORINE [Suspect]
     Indication: RENAL TRANSPLANT
  2. TACROLIMUS [Suspect]
     Indication: RENAL TRANSPLANT

REACTIONS (13)
  - ASPERGILLOSIS [None]
  - ASTHENIA [None]
  - CEREBRAL HAEMORRHAGE [None]
  - COUGH [None]
  - CYTOMEGALOVIRUS INFECTION [None]
  - DYSPNOEA [None]
  - DYSPNOEA EXERTIONAL [None]
  - PNEUMOCYSTIS JIROVECI INFECTION [None]
  - POLYCYTHAEMIA [None]
  - PULMONARY FUNCTION TEST ABNORMAL [None]
  - PYREXIA [None]
  - SEPTIC EMBOLUS [None]
  - TRANSPLANT REJECTION [None]
